FAERS Safety Report 7818348-7 (Version None)
Quarter: 2011Q4

REPORT INFORMATION
  Report Type: 
  Country: None (occurrence: None)
  Receive Date: 20111017
  Receipt Date: 20111006
  Transmission Date: 20120403
  Serious: Yes (Hospitalization, Other)
  Sender: FDA-Public Use
  Company Number: US-NOVOPROD-336748

PATIENT

DRUGS (1)
  1. NOVOLIN 70/30 [Suspect]
     Indication: TYPE 2 DIABETES MELLITUS
     Dosage: 35 U IN THE AM; 25 U IN THE AFTERNOON
     Route: 058
     Dates: start: 20100101, end: 20111003

REACTIONS (3)
  - CONFUSIONAL STATE [None]
  - BLOOD GLUCOSE DECREASED [None]
  - MUSCULAR WEAKNESS [None]
